FAERS Safety Report 5105946-7 (Version None)
Quarter: 2006Q3

REPORT INFORMATION
  Report Type: 
  Country: None (occurrence: None)
  Receive Date: 20060912
  Receipt Date: 20060825
  Transmission Date: 20061208
  Serious: Yes (Hospitalization, Other)
  Sender: FDA-Public Use
  Company Number: US200603001253

PATIENT
  Age: 59 Year
  Sex: Female
  Weight: 70.3 kg

DRUGS (2)
  1. ZYPREXA [Suspect]
     Dosage: SEE IMAGE
     Dates: start: 19960101, end: 20000101
  2. ZYPREXA [Suspect]
     Dosage: SEE IMAGE
     Dates: start: 20000101, end: 20020101

REACTIONS (10)
  - BLOOD CHOLESTEROL INCREASED [None]
  - BLOOD TRIGLYCERIDES INCREASED [None]
  - CARDIAC DISORDER [None]
  - CHOLELITHIASIS [None]
  - DIABETES MELLITUS [None]
  - HYPERTENSION [None]
  - METABOLIC DISORDER [None]
  - PANCREATITIS [None]
  - POLYCYSTIC OVARIES [None]
  - SUICIDE ATTEMPT [None]
